FAERS Safety Report 15196445 (Version 3)
Quarter: 2019Q3

REPORT INFORMATION
  Report Type: Spontaneous
  Country: JP (occurrence: JP)
  Receive Date: 20180725
  Receipt Date: 20190830
  Transmission Date: 20191004
  Serious: Yes (Death, Life-Threatening, Other)
  Sender: FDA-Public Use
  Company Number: US-SA-2018SA199475

PATIENT
  Sex: Male
  Weight: 73.7 kg

DRUGS (18)
  1. ZOLPIDEM TARTRATE. [Interacting]
     Active Substance: ZOLPIDEM TARTRATE
     Dosage: 10 MG
  2. IMIPRAMINE [Suspect]
     Active Substance: IMIPRAMINE
     Dosage: 250 MG
  3. QUAZEPAM. [Concomitant]
     Active Substance: QUAZEPAM
     Dosage: UNK
  4. LEVOMEPROMAZINE [Concomitant]
     Active Substance: LEVOMEPROMAZINE
     Dosage: 25 MG
  5. CLOMIPRAMINE HYDROCHLORIDE. [Concomitant]
     Active Substance: CLOMIPRAMINE HYDROCHLORIDE
     Dosage: 50 MG
  6. ZOLPIDEM TARTRATE. [Interacting]
     Active Substance: ZOLPIDEM TARTRATE
     Dosage: 10 MG
     Route: 048
  7. SUVOREXANT. [Concomitant]
     Active Substance: SUVOREXANT
     Dosage: UNK
  8. DULOXETINE HYDROCHLORIDE. [Concomitant]
     Active Substance: DULOXETINE HYDROCHLORIDE
     Dosage: UNK
  9. ZOLPIDEM TARTRATE. [Suspect]
     Active Substance: ZOLPIDEM TARTRATE
     Dosage: 5 MG
     Route: 048
  10. FLUNITRAZEPAM [Concomitant]
     Active Substance: FLUNITRAZEPAM
     Dosage: 2 MG
  11. ZOLPIDEM TARTRATE. [Interacting]
     Active Substance: ZOLPIDEM TARTRATE
     Dosage: 5 MG
     Route: 048
  12. ZOLPIDEM TARTRATE. [Interacting]
     Active Substance: ZOLPIDEM TARTRATE
     Dosage: 10 MG
     Route: 042
  13. VALPROATE SODIUM. [Suspect]
     Active Substance: VALPROATE SODIUM
     Dosage: 200 MG
  14. FLUNITRAZEPAM [Concomitant]
     Active Substance: FLUNITRAZEPAM
     Dosage: 1 MG
  15. AMITRIPTYLINE HYDROCHLORIDE. [Concomitant]
     Active Substance: AMITRIPTYLINE HYDROCHLORIDE
     Dosage: 25 MG
  16. ZOLPIDEM TARTRATE. [Interacting]
     Active Substance: ZOLPIDEM TARTRATE
     Dosage: 5 MG
     Route: 042
  17. ESZOPICLONE. [Suspect]
     Active Substance: ESZOPICLONE
     Dosage: 10 DF
  18. NORTRIPTYLINE [Concomitant]
     Active Substance: NORTRIPTYLINE

REACTIONS (8)
  - Intentional overdose [Fatal]
  - Asphyxia [Fatal]
  - Food interaction [Fatal]
  - Altered state of consciousness [Fatal]
  - Intentional product use issue [Fatal]
  - Vomiting [Fatal]
  - Aspiration [Fatal]
  - Toxicity to various agents [Fatal]
